FAERS Safety Report 6131892-6 (Version None)
Quarter: 2009Q1

REPORT INFORMATION
  Report Type: 
  Country: None (occurrence: None)
  Receive Date: 20090325
  Receipt Date: 20090318
  Transmission Date: 20090719
  Serious: Yes (Death, Other)
  Sender: FDA-Public Use
  Company Number: JP-AVENTIS-200910778JP

PATIENT
  Age: 84 Year
  Sex: Female

DRUGS (2)
  1. LASIX [Suspect]
     Route: 048
     Dates: start: 20080301, end: 20090201
  2. LASIX [Suspect]
     Route: 048
     Dates: start: 20090201

REACTIONS (8)
  - BUCCAL MUCOSAL ROUGHENING [None]
  - DEATH [None]
  - HYPERSENSITIVITY [None]
  - HYPERTHERMIA [None]
  - LIP SWELLING [None]
  - MELAENA [None]
  - PHARYNGEAL OEDEMA [None]
  - RASH GENERALISED [None]
